FAERS Safety Report 9708724 (Version 2)
Quarter: 2014Q1

REPORT INFORMATION
  Report Type: Report from Study
  Country: DE (occurrence: DE)
  Receive Date: 20131125
  Receipt Date: 20140127
  Transmission Date: 20141002
  Serious: Yes (Hospitalization)
  Sender: FDA-Public Use
  Company Number: DE-TEVA-446280USA

PATIENT
  Age: 76 Year
  Sex: Female

DRUGS (9)
  1. BENDAMUSTINE [Suspect]
     Indication: PLASMA CELL MYELOMA
     Dosage: CYCLE 1
     Route: 042
     Dates: start: 20130611, end: 20130612
  2. BENDAMUSTINE [Suspect]
     Dosage: CYCLE 2
     Route: 042
     Dates: start: 20130709, end: 20130710
  3. BENDAMUSTINE [Suspect]
     Dosage: CYCLE 3
     Route: 042
     Dates: start: 20130902, end: 20130909
  4. PREDNISOLONE [Suspect]
     Indication: PLASMA CELL MYELOMA
     Dosage: CYCLE 1
     Route: 048
     Dates: start: 20130611, end: 20130612
  5. PREDNISOLONE [Suspect]
     Dosage: CYCLE 2
     Dates: start: 20130709, end: 20130710
  6. REVLIMID [Suspect]
     Indication: PLASMA CELL MYELOMA
     Route: 048
     Dates: start: 20130902, end: 20130909
  7. PIPERACILLIN SODIUM W/TAZOBACTAM [Concomitant]
     Dates: start: 20130917, end: 20130926
  8. LEVOFLOXACIN [Concomitant]
     Dates: start: 20130917, end: 20130926
  9. METRONIDAZOLE [Concomitant]
     Dates: start: 201309, end: 201309

REACTIONS (2)
  - General physical health deterioration [Recovered/Resolved]
  - Oedema peripheral [Not Recovered/Not Resolved]
